FAERS Safety Report 4532053-4 (Version None)
Quarter: 2004Q4

REPORT INFORMATION
  Report Type: 
  Country: None (occurrence: None)
  Receive Date: 20041220
  Receipt Date: 20041209
  Transmission Date: 20050328
  Serious: Yes (Hospitalization)
  Sender: FDA-Public Use
  Company Number: 387854

PATIENT
  Age: 102 Year
  Sex: Female

DRUGS (8)
  1. DILATREND [Suspect]
     Indication: CARDIAC FAILURE CONGESTIVE
     Dosage: 6MG PER DAY
     Route: 048
     Dates: start: 20030216, end: 20040224
  2. LASIX [Concomitant]
  3. ALDACTONE [Concomitant]
  4. ERGOCALCIFEROL [Concomitant]
  5. UBIDECARENONE [Concomitant]
  6. ASTRIX [Concomitant]
  7. MOCLOBEMIDE [Concomitant]
  8. GTN [Concomitant]

REACTIONS (6)
  - DYSPNOEA EXACERBATED [None]
  - HYPOTENSION [None]
  - HYPOXIA [None]
  - LEFT VENTRICULAR FAILURE [None]
  - LETHARGY [None]
  - ORTHOPNOEA [None]
